FAERS Safety Report 22599779 (Version 1)
Quarter: 2023Q2

REPORT INFORMATION
  Report Type: Spontaneous
  Country: FR (occurrence: FR)
  Receive Date: 20230614
  Receipt Date: 20230614
  Transmission Date: 20230721
  Serious: Yes (Hospitalization)
  Sender: FDA-Public Use
  Company Number: None

PATIENT
  Age: 46 Year
  Sex: Female

DRUGS (2)
  1. NOREPINEPHRINE\NOREPINEPHRINE BITARTRATE [Suspect]
     Active Substance: NOREPINEPHRINE\NOREPINEPHRINE BITARTRATE
     Indication: Product used for unknown indication
     Dosage: 8 MILLIGRAM, 8 MG
     Route: 042
     Dates: start: 20230510, end: 20230510
  2. Spasfon [Concomitant]
     Indication: Product used for unknown indication
     Dosage: NOT ADMINISTERED
     Route: 042
     Dates: start: 20230510, end: 20230510

REACTIONS (3)
  - Wrong product administered [Recovered/Resolved]
  - Abdominal pain upper [Recovering/Resolving]
  - Troponin increased [Recovering/Resolving]

NARRATIVE: CASE EVENT DATE: 20230510
